FAERS Safety Report 25797104 (Version 1)
Quarter: 2025Q3

REPORT INFORMATION
  Report Type: Spontaneous
  Country: CN (occurrence: CN)
  Receive Date: 20250912
  Receipt Date: 20250912
  Transmission Date: 20251020
  Serious: Yes (Other)
  Sender: DAIICHI
  Company Number: CN-DSJP-DS-2025-163669-CN

PATIENT
  Age: 57 Year
  Sex: Male

DRUGS (8)
  1. TRASTUZUMAB DERUXTECAN [Suspect]
     Active Substance: TRASTUZUMAB DERUXTECAN
     Indication: Cholangiocarcinoma
     Dosage: 5.4 MG/KG, ONCE EVERY 3 WK
     Route: 065
     Dates: start: 202406, end: 20241227
  2. LENVATINIB [Suspect]
     Active Substance: LENVATINIB
     Indication: Targeted cancer therapy
     Dosage: 8 MG, QD
     Route: 065
     Dates: start: 202410, end: 20241227
  3. CADONILIMAB [Concomitant]
     Active Substance: CADONILIMAB
     Indication: Metastases to lymph nodes
     Route: 065
     Dates: start: 20240418, end: 20240531
  4. CADONILIMAB [Concomitant]
     Active Substance: CADONILIMAB
     Indication: Metastases to peritoneum
  5. OXALIPLATIN [Concomitant]
     Active Substance: OXALIPLATIN
     Indication: Metastases to lymph nodes
     Route: 065
     Dates: start: 20240418, end: 20240531
  6. OXALIPLATIN [Concomitant]
     Active Substance: OXALIPLATIN
     Indication: Metastases to peritoneum
  7. CAPECITABINE [Concomitant]
     Active Substance: CAPECITABINE
     Indication: Metastases to peritoneum
     Route: 065
     Dates: start: 20240418, end: 20240531
  8. CAPECITABINE [Concomitant]
     Active Substance: CAPECITABINE
     Indication: Metastases to lymph nodes

REACTIONS (4)
  - Myelosuppression [Recovering/Resolving]
  - Liver function test abnormal [Recovering/Resolving]
  - Thrombocytopenia [Unknown]
  - Drug resistance [Unknown]

NARRATIVE: CASE EVENT DATE: 20240101
